FAERS Safety Report 7051264-X (Version None)
Quarter: 2010Q4

REPORT INFORMATION
  Report Type: 
  Country: None (occurrence: None)
  Receive Date: 20101019
  Receipt Date: 20101015
  Transmission Date: 20110411
  Serious: Yes (Other)
  Sender: FDA-Public Use
  Company Number: FI-BRISTOL-MYERS SQUIBB COMPANY-15292568

PATIENT

DRUGS (1)
  1. ORENCIA [Suspect]
     Dates: end: 20100101

REACTIONS (2)
  - IMMUNOGLOBULINS DECREASED [None]
  - PNEUMONIA [None]
